FAERS Safety Report 16664458 (Version 2)
Quarter: 2019Q3

REPORT INFORMATION
  Report Type: Spontaneous
  Country: US (occurrence: US)
  Receive Date: 20190802
  Receipt Date: 20190906
  Transmission Date: 20191004
  Serious: Yes (Other)
  Sender: FDA-Public Use
  Company Number: US-ELI_LILLY_AND_COMPANY-US201907013565

PATIENT
  Sex: Female
  Weight: 112.02 kg

DRUGS (17)
  1. CHOLECALCIFEROL [Concomitant]
     Active Substance: CHOLECALCIFEROL
  2. NEURONTIN [Concomitant]
     Active Substance: GABAPENTIN
  3. DICLOFENAC SODIUM. [Concomitant]
     Active Substance: DICLOFENAC SODIUM
  4. TRAMADOL HCL [Concomitant]
     Active Substance: TRAMADOL HYDROCHLORIDE
  5. LASIX [Concomitant]
     Active Substance: FUROSEMIDE
  6. FLEXERIL [CEFIXIME] [Concomitant]
     Active Substance: CEFIXIME
  7. LOTENSIN [Concomitant]
     Active Substance: BENAZEPRIL HYDROCHLORIDE
  8. ASPIRIN (E.C.) [Concomitant]
     Active Substance: ASPIRIN
  9. ELAVIL [ALLOPURINOL] [Concomitant]
     Active Substance: ALLOPURINOL
  10. EMGALITY [Suspect]
     Active Substance: GALCANEZUMAB-GNLM
     Indication: MIGRAINE
     Dosage: 1 DOSAGE FORM, SINGLE
     Route: 065
     Dates: start: 20190719, end: 20190719
  11. BUTALBITAL AND ACETAMINOPHEN [Concomitant]
     Active Substance: ACETAMINOPHEN\BUTALBITAL
  12. PROTONIX [OMEPRAZOLE] [Concomitant]
     Active Substance: OMEPRAZOLE
  13. EMGALITY [Suspect]
     Active Substance: GALCANEZUMAB-GNLM
     Dosage: 1 DOSAGE FORM, SINGLE
     Route: 065
     Dates: start: 20190720, end: 20190720
  14. CATAPRES [Concomitant]
     Active Substance: CLONIDINE HYDROCHLORIDE
  15. ATENOLOL. [Concomitant]
     Active Substance: ATENOLOL
  16. NORVASC [Concomitant]
     Active Substance: AMLODIPINE BESYLATE
  17. HYDROCODONE [Concomitant]
     Active Substance: HYDROCODONE

REACTIONS (10)
  - Swollen tongue [Recovering/Resolving]
  - Migraine [Recovering/Resolving]
  - Lip swelling [Recovering/Resolving]
  - Chest pain [Recovering/Resolving]
  - Inappropriate schedule of product administration [Unknown]
  - Chills [Unknown]
  - Nausea [Unknown]
  - Photophobia [Unknown]
  - Swelling face [Recovering/Resolving]
  - Vision blurred [Recovering/Resolving]
